FAERS Safety Report 7996967-5 (Version None)
Quarter: 2011Q4

REPORT INFORMATION
  Report Type: 
  Country: None (occurrence: None)
  Receive Date: 20111221
  Receipt Date: 20111212
  Transmission Date: 20120403
  Serious: Yes (Hospitalization, Other)
  Sender: FDA-Public Use
  Company Number: MX-SANOFI-AVENTIS-2011SA081508

PATIENT
  Age: 52 Year
  Sex: Male
  Weight: 62 kg

DRUGS (2)
  1. LANTUS [Suspect]
     Indication: TYPE 2 DIABETES MELLITUS
     Route: 058
     Dates: start: 20100101, end: 20110401
  2. PLENDIL [Concomitant]
     Route: 048
     Dates: start: 20060101

REACTIONS (6)
  - HEADACHE [None]
  - CATARACT [None]
  - HYPOAESTHESIA [None]
  - HYPERGLYCAEMIA [None]
  - RENAL FAILURE [None]
  - MICTURITION DISORDER [None]
